FAERS Safety Report 9848378 (Version 1)
Quarter: 2013Q4

REPORT INFORMATION
  Report Type: Spontaneous
  Country: US (occurrence: None)
  Receive Date: 20131224
  Receipt Date: 20131224
  Transmission Date: 20140711
  Serious: Yes (Other)
  Sender: FDA-Public Use
  Company Number: PHEH2013US016557

PATIENT
  Age: 64 Year
  Sex: Female

DRUGS (14)
  1. MYFORTIC (MYCOPHENOLIC ACID) TABLET [Suspect]
     Indication: RENAL TRANSPLANT
     Route: 048
     Dates: start: 20000830
  2. CYCLOSPORIN (CICLOSPORIN) [Concomitant]
  3. GENGRAF (CICLOSPORIN) [Concomitant]
  4. PREDNISONE (PREDNISONE) [Concomitant]
  5. FUROSEMIDE (FUROSEMIDE) [Concomitant]
  6. POTASSIUM CHLORIDE (POTASSIUM CHLORIDE) [Concomitant]
  7. RESTASIS (CICLOSPORIN) EYE DROPS [Concomitant]
  8. GENTEAL (CARBOMER, HYPROMELLOSE) EYE DROPS [Concomitant]
  9. DOXAZOSIN (DOXAZOSIN) [Concomitant]
  10. VOLTAREN ^CIBA-GEIGY^ (DICLOFENAC SODIUM) [Concomitant]
  11. DILTIAZEM (DILTIAZEM) [Concomitant]
  12. LOSARTAN (LOSARTAN) [Concomitant]
  13. ATENOLOL (ATENOLOL) [Concomitant]
  14. ISOSORBIDE (ISOSORBIDE) [Concomitant]

REACTIONS (5)
  - Kidney transplant rejection [None]
  - Spinal disorder [None]
  - Agitation [None]
  - Gait disturbance [None]
  - Asthenia [None]
